FAERS Safety Report 9471196 (Version 3)
Quarter: 2014Q1

REPORT INFORMATION
  Report Type: Report from Study
  Country: US (occurrence: US)
  Receive Date: 20130822
  Receipt Date: 20140101
  Transmission Date: 20141002
  Serious: Yes (Hospitalization)
  Sender: FDA-Public Use
  Company Number: US-AMGEN-USACT2013057405

PATIENT
  Age: 50 Year
  Sex: Female

DRUGS (16)
  1. ETANERCEPT [Suspect]
     Indication: RHEUMATOID ARTHRITIS
     Dosage: 50 MG, QWK
     Route: 058
     Dates: start: 20111209, end: 20120607
  2. ETANERCEPT [Suspect]
     Route: 058
  3. SOLUMEDROL [Concomitant]
     Indication: CHRONIC OBSTRUCTIVE PULMONARY DISEASE
     Dosage: UNK
  4. ADVAIR [Concomitant]
     Indication: ASTHMA
     Dosage: 1 MUG, QD
     Dates: start: 2000
  5. ADVAIR [Concomitant]
     Indication: CHRONIC OBSTRUCTIVE PULMONARY DISEASE
  6. VENTOLIN [Concomitant]
     Indication: ASTHMA
     Dosage: 1 DF, UNK
     Dates: start: 1994
  7. VENTOLIN [Concomitant]
     Indication: CHRONIC OBSTRUCTIVE PULMONARY DISEASE
  8. LEVOTHYROXINE [Concomitant]
     Indication: HYPOTHYROIDISM
     Dosage: 25 MUG, UNK
     Route: 048
     Dates: start: 201106
  9. PREDNISONE [Concomitant]
     Indication: RHEUMATOID ARTHRITIS
     Dosage: 10 MG, QD
     Route: 048
     Dates: start: 201107
  10. NAPROSYN [Concomitant]
     Indication: RHEUMATOID ARTHRITIS
     Dosage: 500 MG,AS NEEDED
     Route: 048
     Dates: start: 2010
  11. VICODIN [Concomitant]
     Indication: PLEURISY
     Dosage: 1 DF,PRN
     Route: 048
     Dates: start: 20120328, end: 20120414
  12. CEFTRIAXONE [Concomitant]
     Dosage: UNK
  13. DUONEB [Concomitant]
     Dosage: UNK
  14. ZITHROMAX [Concomitant]
     Dosage: 500 MG, QD
     Route: 048
     Dates: start: 20120607
  15. LEFLUNOMIDE [Concomitant]
     Indication: RHEUMATOID ARTHRITIS
     Dosage: 20 MG, QD
     Route: 048
     Dates: start: 20120828
  16. LEVAQUIN [Concomitant]
     Dosage: 500 MG, UNK
     Route: 048
     Dates: start: 20130524, end: 201306

REACTIONS (2)
  - Pulmonary oedema [Recovered/Resolved]
  - Pneumonia [Recovered/Resolved]
